FAERS Safety Report 9129628 (Version 1)
Quarter: 2013Q1

REPORT INFORMATION
  Report Type: Report from Study
  Country: DE (occurrence: DE)
  Receive Date: 20130125
  Receipt Date: 20130125
  Transmission Date: 20140127
  Serious: Yes (Life-Threatening, Hospitalization, Other)
  Sender: FDA-Public Use
  Company Number: DE-BRISTOL-MYERS SQUIBB COMPANY-17293788

PATIENT
  Age: 54 Year
  Sex: Female
  Weight: 48 kg

DRUGS (6)
  1. PACLITAXEL [Suspect]
     Indication: BREAST CANCER METASTATIC
     Dosage: LAST DOSE PRIOR TO SAE ON 25MAY11 (CYCLE 8)
     Route: 042
     Dates: start: 20110413, end: 20110525
  2. BEVACIZUMAB [Suspect]
     Indication: BREAST CANCER METASTATIC
     Dosage: INFUSION SOLUTION?LAST DOSE PRIOR TO SAE ON 25MAY11 (CYCLE 8)
     Route: 042
     Dates: start: 20101230, end: 20110525
  3. DOCETAXEL [Suspect]
     Indication: BREAST CANCER METASTATIC
     Dosage: LAST DOSE PRIOR TO SAE ON 23MAR2011
     Route: 042
     Dates: start: 20101230, end: 20110323
  4. FORADIL [Concomitant]
  5. SALBUTAMOL [Concomitant]
     Dosage: 1 IN 1 AS REQUIRED
  6. MIFLONIDE [Concomitant]

REACTIONS (8)
  - Pneumonia [Not Recovered/Not Resolved]
  - Diarrhoea [Recovered/Resolved]
  - Atrial fibrillation [Unknown]
  - Ejection fraction decreased [Recovered/Resolved]
  - Cerebral haemorrhage [Unknown]
  - Pericardial effusion [Unknown]
  - Pleural effusion [Unknown]
  - Pneumothorax [Unknown]
